FAERS Safety Report 17273826 (Version 1)
Quarter: 2020Q1

REPORT INFORMATION
  Report Type: Spontaneous
  Country: US (occurrence: US)
  Receive Date: 20200115
  Receipt Date: 20200115
  Transmission Date: 20200409
  Serious: No
  Sender: FDA-Public Use
  Company Number: US-PERRIGO-19US002621

PATIENT
  Age: 26 Year
  Sex: Male
  Weight: 97.51 kg

DRUGS (3)
  1. IBUPROFEN. [Suspect]
     Active Substance: IBUPROFEN
     Indication: SWELLING
     Dosage: 400 MG, 1 TO 2 TIMES DAILY, PRN
     Route: 048
  2. IBUPROFEN. [Suspect]
     Active Substance: IBUPROFEN
     Indication: EYE SWELLING
     Dosage: 400 MG, 4 TIMES IN 13 HOURS
     Route: 048
     Dates: start: 20190224, end: 20190225
  3. IBUPROFEN. [Suspect]
     Active Substance: IBUPROFEN
     Indication: PAIN

REACTIONS (2)
  - Off label use [Unknown]
  - Incorrect dose administered [Recovered/Resolved]

NARRATIVE: CASE EVENT DATE: 20190224
